FAERS Safety Report 9532115 (Version 2)
Quarter: 2013Q3

REPORT INFORMATION
  Report Type: Spontaneous
  Country: GR (occurrence: GR)
  Receive Date: 20130918
  Receipt Date: 20130918
  Transmission Date: 20140515
  Serious: Yes (Hospitalization, Other)
  Sender: FDA-Public Use
  Company Number: GR-ROCHE-1272086

PATIENT
  Age: 64 Year
  Sex: Male

DRUGS (3)
  1. ZELBORAF [Suspect]
     Indication: PRODUCT USED FOR UNKNOWN INDICATION
     Dosage: 4 TABLETS IN THE MORNING AND 4 TABLETS IN THE EVENING
     Route: 065
     Dates: start: 201308
  2. ZELBORAF [Suspect]
     Dosage: 3 TABLETS IN THE MORNING AND 3 TABLETS IN THE EVENING
     Route: 065
  3. CORTISONE [Concomitant]

REACTIONS (3)
  - Pyrexia [Recovered/Resolved]
  - Rash [Not Recovered/Not Resolved]
  - Eosinophilia [Recovered/Resolved]
